FAERS Safety Report 8697077 (Version 5)
Quarter: 2014Q1

REPORT INFORMATION
  Report Type: Spontaneous
  Country: FR (occurrence: FR)
  Receive Date: 20120801
  Receipt Date: 20140318
  Transmission Date: 20141002
  Serious: Yes (Death, Hospitalization, Other)
  Sender: FDA-Public Use
  Company Number: FR-009507513-1207FRA011117

PATIENT
  Age: 74 Year
  Sex: Female
  Weight: 82 kg

DRUGS (21)
  1. EMEND [Interacting]
     Dosage: 80 MG, QD
     Route: 048
     Dates: start: 20120424, end: 20120425
  2. ROCEPHIN [Suspect]
     Dosage: 1 G, QD
     Route: 042
     Dates: start: 20120508, end: 20120515
  3. HOLOXAN [Interacting]
     Indication: SARCOMA
     Dosage: 3840 MG, QD
     Route: 051
     Dates: start: 20120425, end: 20120430
  4. HOLOXAN [Interacting]
     Dosage: 3840 MG, QD
     Route: 042
     Dates: start: 20120322, end: 20120325
  5. HOLOXAN [Interacting]
     Dosage: 3840 MG, QD
     Route: 042
     Dates: start: 201204, end: 201204
  6. ROVAMYCINE [Suspect]
     Dosage: UNK
     Route: 051
     Dates: start: 20120509, end: 20120515
  7. ZOPHREN (ONDANSETRON) [Concomitant]
     Indication: PROPHYLAXIS OF NAUSEA AND VOMITING
     Dosage: 8 MG, BID
     Route: 042
     Dates: start: 20120423, end: 20120427
  8. GRANOCYTE [Concomitant]
     Dosage: 33600000 IU, QD
     Route: 042
     Dates: start: 20120428, end: 20120503
  9. CALCIPARINE [Concomitant]
     Dosage: 0.2 IU, QD
     Dates: start: 20120509, end: 20120520
  10. SOLU-MEDROL [Concomitant]
     Dosage: 60 MG, QD
     Route: 042
     Dates: start: 20120423, end: 20120427
  11. UROMITEXAN [Concomitant]
     Dosage: 2000 MG, QD
     Route: 042
     Dates: start: 20120423, end: 20120427
  12. ALPRAZOLAM [Concomitant]
     Dosage: 0.25 MG, QD
     Route: 048
  13. LYRICA [Concomitant]
     Dosage: 75 MG, QD
     Route: 048
  14. SEROPLEX [Concomitant]
     Dosage: 10 MG, QD
     Route: 048
  15. SMECTA [Concomitant]
     Dosage: 1 G, TID
     Dates: end: 20120504
  16. STAGID [Concomitant]
     Dosage: 700 MG, BID
  17. ZOPICLONE [Concomitant]
     Dosage: 7.5 G, QD
     Route: 048
  18. CETIRIZINE HYDROCHLORIDE [Concomitant]
     Dosage: 5 MG, UNK
     Route: 048
  19. VOGALENE [Concomitant]
     Dosage: 7.5 G, TID
     Dates: start: 20120428
  20. TARDYFERON [Concomitant]
     Dosage: 80 MG, BID
     Route: 048
     Dates: start: 20120428
  21. EMEND [Suspect]
     Indication: NAUSEA
     Dosage: 125 MG, QD
     Route: 048
     Dates: start: 20120424, end: 20120425

REACTIONS (6)
  - Toxic encephalopathy [Fatal]
  - Drug interaction [Fatal]
  - Renal failure [Recovering/Resolving]
  - Pancytopenia [Recovering/Resolving]
  - Septic shock [Unknown]
  - Lung disorder [Unknown]
